FAERS Safety Report 6783941-X (Version None)
Quarter: 2010Q2

REPORT INFORMATION
  Report Type: 
  Country: None (occurrence: None)
  Receive Date: 20100622
  Receipt Date: 20100617
  Transmission Date: 20101027
  Serious: Yes (Death, Hospitalization, Other)
  Sender: FDA-Public Use
  Company Number: US-CEPHALON-2010001751

PATIENT
  Sex: Female
  Weight: 70 kg

DRUGS (13)
  1. TREANDA [Suspect]
     Indication: CHRONIC LYMPHOCYTIC LEUKAEMIA
     Route: 042
     Dates: start: 20100218, end: 20100219
  2. PREDNISONE [Concomitant]
  3. TYLENOL [Concomitant]
  4. ALBUTEROL [Concomitant]
  5. CYCLOSPORINE OPTHALMIC [Concomitant]
  6. NEXIUM [Concomitant]
  7. ESTRADIOL [Concomitant]
  8. ALLEGRA [Concomitant]
  9. ADVAIR DISKUS 100/50 [Concomitant]
  10. GUAIFENESIN [Concomitant]
  11. SINGULAIR [Concomitant]
  12. MULTI-VITAMIN [Concomitant]
  13. NASAL SPRAY [Concomitant]

REACTIONS (6)
  - HEPATIC FAILURE [None]
  - HYPERBILIRUBINAEMIA [None]
  - PANCYTOPENIA [None]
  - PYREXIA [None]
  - RENAL FAILURE ACUTE [None]
  - STAPHYLOCOCCAL INFECTION [None]
